FAERS Safety Report 24971622 (Version 1)
Quarter: 2025Q1

REPORT INFORMATION
  Report Type: Report from Study
  Country: ES (occurrence: ES)
  Receive Date: 20250214
  Receipt Date: 20250214
  Transmission Date: 20250409
  Serious: Yes (Other)
  Sender: UCB
  Company Number: ES-UCBSA-2025007749

PATIENT
  Sex: Male

DRUGS (2)
  1. FENFLURAMINE HYDROCHLORIDE [Suspect]
     Active Substance: FENFLURAMINE HYDROCHLORIDE
     Indication: Lennox-Gastaut syndrome
  2. FENFLURAMINE HYDROCHLORIDE [Suspect]
     Active Substance: FENFLURAMINE HYDROCHLORIDE

REACTIONS (6)
  - Clonic convulsion [Unknown]
  - Generalised tonic-clonic seizure [Unknown]
  - Hemiclonic seizure [Unknown]
  - Partial seizures [Unknown]
  - Off label use [Unknown]
  - Drug ineffective [Unknown]
